FAERS Safety Report 4726943-7 (Version None)
Quarter: 2005Q3

REPORT INFORMATION
  Report Type: 
  Country: None (occurrence: None)
  Receive Date: 20050726
  Receipt Date: 20050712
  Transmission Date: 20060218
  Serious: Yes (Life-Threatening, Hospitalization, Other)
  Sender: FDA-Public Use
  Company Number: US-2005-008987

PATIENT
  Age: 33 Year
  Sex: Male
  Weight: 88.6 kg

DRUGS (4)
  1. ULTRAVIST 300 [Suspect]
     Indication: COMPUTERISED TOMOGRAM HEAD
     Dosage: 100 ML, 1 DOSE, INTRAVENOUS
     Route: 042
     Dates: start: 20050525, end: 20050525
  2. ULTRAVIST 300 [Suspect]
  3. VICODIN [Concomitant]
  4. LAMOTRIGINE [Concomitant]

REACTIONS (20)
  - ANAPHYLACTIC SHOCK [None]
  - ASTHENIA [None]
  - BLOOD CREATINE PHOSPHOKINASE INCREASED [None]
  - BLOOD CREATINE PHOSPHOKINASE MB INCREASED [None]
  - CARDIAC ARREST [None]
  - CHEST PAIN [None]
  - CONTRAST MEDIA REACTION [None]
  - CONVULSION [None]
  - DRUG HYPERSENSITIVITY [None]
  - DYSARTHRIA [None]
  - EMOTIONAL DISTRESS [None]
  - ERYTHEMA [None]
  - EYELID OEDEMA [None]
  - FLUSHING [None]
  - MYOGLOBIN BLOOD INCREASED [None]
  - NASAL OEDEMA [None]
  - POSTURING [None]
  - PUPILLARY REFLEX IMPAIRED [None]
  - TACHYCARDIA [None]
  - TROPONIN T INCREASED [None]
